FAERS Safety Report 13408378 (Version 1)
Quarter: 2017Q2

REPORT INFORMATION
  Report Type: Spontaneous
  Country: US (occurrence: US)
  Receive Date: 20170405
  Receipt Date: 20170405
  Transmission Date: 20170830
  Serious: Yes (Hospitalization, Other)
  Sender: FDA-Public Use
  Company Number: None

PATIENT
  Age: 80 Year
  Sex: Female

DRUGS (1)
  1. LATANOPROST. [Suspect]
     Active Substance: LATANOPROST
     Route: 047
     Dates: start: 20170222

REACTIONS (5)
  - Pyrexia [None]
  - Eye pruritus [None]
  - Dyspnoea [None]
  - Skin exfoliation [None]
  - Vision blurred [None]

NARRATIVE: CASE EVENT DATE: 20170405
